FAERS Safety Report 5107821-0 (Version None)
Quarter: 2006Q3

REPORT INFORMATION
  Report Type: 
  Country: None (occurrence: None)
  Receive Date: 20060919
  Receipt Date: 20060905
  Transmission Date: 20061208
  Serious: Yes (Death)
  Sender: FDA-Public Use
  Company Number: US-JNJFOC-20060902065

PATIENT
  Age: 49 Year
  Sex: Male

DRUGS (4)
  1. FENTANYL [Suspect]
     Indication: UNEVALUABLE EVENT
     Route: 065
  2. ASPIRIN [Suspect]
     Indication: DRUG USE FOR UNKNOWN INDICATION
     Route: 065
  3. CODEINE [Suspect]
     Indication: UNEVALUABLE EVENT
     Route: 065
  4. MORPHINE [Suspect]
     Indication: UNEVALUABLE EVENT
     Route: 065

REACTIONS (1)
  - DRUG TOXICITY [None]
